FAERS Safety Report 23834800 (Version 1)
Quarter: 2024Q2

REPORT INFORMATION
  Report Type: Spontaneous
  Country: ES (occurrence: ES)
  Receive Date: 20240509
  Receipt Date: 20240509
  Transmission Date: 20240715
  Serious: Yes (Other)
  Sender: FDA-Public Use
  Company Number: None

PATIENT
  Age: 63 Year
  Sex: Male

DRUGS (11)
  1. TRIAMCINOLONE ACETONIDE [Suspect]
     Active Substance: TRIAMCINOLONE ACETONIDE
     Indication: Joint injection
     Dates: start: 20240216, end: 20240216
  2. MEPIVACAINE HYDROCHLORIDE [Suspect]
     Active Substance: MEPIVACAINE HYDROCHLORIDE
     Indication: Joint injection
     Dosage: 10 MG/ML SOLUTION FOR INJECTION, 10 ML X 100 AMPOULES
     Dates: start: 20240216, end: 20240216
  3. PALEXIA [Concomitant]
     Active Substance: TAPENTADOL HYDROCHLORIDE
     Indication: Product used for unknown indication
     Dosage: 25 MG DELAYED-RELEASE TABLETS, 60 TABLETS
     Route: 048
     Dates: start: 20200526
  4. BISOPROLOL [Concomitant]
     Active Substance: BISOPROLOL\BISOPROLOL FUMARATE
     Indication: Product used for unknown indication
     Dosage: 5 MG FILM-COATED TABLETS, 28 TABLETS
     Route: 048
     Dates: start: 20230529
  5. NEURONTIN [Concomitant]
     Active Substance: GABAPENTIN
     Indication: Product used for unknown indication
     Dosage: 400 MG HARD CAPSULES, 90 CAPSULES
     Route: 048
     Dates: start: 20210216
  6. ROSUVASTATIN/EZETIMIBE CINFA [Concomitant]
     Indication: Product used for unknown indication
     Dosage: 10 MG/10 MG FILM-COATED TABLETS, 30 TABLETS
     Route: 048
     Dates: start: 20240123
  7. PALEXIA [Concomitant]
     Active Substance: TAPENTADOL HYDROCHLORIDE
     Indication: Product used for unknown indication
     Dosage: 100 MG DELAYED-RELEASE TABLETS, 60 TABLETS
     Route: 048
     Dates: start: 20231016
  8. EUTHYROX [Concomitant]
     Active Substance: LEVOTHYROXINE SODIUM
     Indication: Product used for unknown indication
     Dosage: 137 MICROGRAM TABLETS, 100 TABLET
     Route: 048
     Dates: start: 20240306
  9. ASPIRIN [Concomitant]
     Active Substance: ASPIRIN
     Indication: Product used for unknown indication
     Dosage: 100 MG GASTRO-RESISTANT TABLETS (GD), 30 TABLETS (PVC- ALUMINIUM)
     Route: 048
     Dates: start: 20230529
  10. PALEXIA [Concomitant]
     Active Substance: TAPENTADOL HYDROCHLORIDE
     Indication: Product used for unknown indication
     Dosage: 50 MG DELAYED-RELEASE TABLETS, 60 TABLETS
     Route: 048
     Dates: start: 20220328
  11. DOXAZOSIN NEO CINFA [Concomitant]
     Indication: Product used for unknown indication
     Dosage: 8 MG DELAYED-RELEASE TABLETS (GD), 28 TABLETS
     Route: 048
     Dates: start: 20181226

REACTIONS (1)
  - Vertigo [Recovering/Resolving]

NARRATIVE: CASE EVENT DATE: 20240218
